FAERS Safety Report 26122381 (Version 1)
Quarter: 2025Q4

REPORT INFORMATION
  Report Type: Spontaneous
  Country: EU (occurrence: EU)
  Receive Date: 20251204
  Receipt Date: 20251204
  Transmission Date: 20260118
  Serious: Yes (Other)
  Sender: TAKEDA
  Company Number: None

PATIENT
  Age: 44 Year
  Sex: Female

DRUGS (1)
  1. PRUCALOPRIDE SUCCINATE [Suspect]
     Active Substance: PRUCALOPRIDE SUCCINATE
     Indication: Constipation
     Dosage: 1 MILLIGRAM

REACTIONS (10)
  - Headache [Recovering/Resolving]
  - Dizziness [Recovering/Resolving]
  - Depressed level of consciousness [Recovering/Resolving]
  - Somnolence [Recovering/Resolving]
  - Nausea [Recovering/Resolving]
  - Salivary hypersecretion [Recovering/Resolving]
  - Dyspepsia [Recovering/Resolving]
  - Eructation [Recovering/Resolving]
  - Sensation of foreign body [Recovering/Resolving]
  - Disturbance in attention [Recovering/Resolving]

NARRATIVE: CASE EVENT DATE: 20251118
